FAERS Safety Report 9546987 (Version 1)
Quarter: 2013Q2

REPORT INFORMATION
  Report Type: Spontaneous
  Country: US (occurrence: None)
  Receive Date: 20130606
  Receipt Date: 20130606
  Transmission Date: 20140414
  Serious: No
  Sender: FDA-Public Use
  Company Number: 2012PROUSA02426

PATIENT
  Age: 86 Year
  Sex: Male
  Weight: 67 kg

DRUGS (1)
  1. PROVENGE (SIPULEUCEL-T SUSPENSION, 250ML [Suspect]
     Indication: PROSTATE CANCER METASTATIC
     Dosage: 250 ML, SINGLE
     Dates: start: 20121214, end: 20121214

REACTIONS (5)
  - Device leakage [None]
  - Abdominal pain upper [None]
  - Haematochezia [None]
  - Hospice care [None]
  - Back pain [None]
